FAERS Safety Report 6007825-X (Version None)
Quarter: 2008Q4

REPORT INFORMATION
  Report Type: 
  Country: None (occurrence: None)
  Receive Date: 20081217
  Receipt Date: 20080701
  Transmission Date: 20090506
  Serious: No
  Sender: FDA-Public Use
  Company Number: US-ASTRAZENECA-2008UW13162

PATIENT
  Age: 69 Year
  Sex: Female

DRUGS (14)
  1. CRESTOR [Suspect]
     Indication: BLOOD CHOLESTEROL
     Route: 048
     Dates: start: 20080501
  2. CLARINEX [Concomitant]
  3. ASPIRIN [Concomitant]
  4. VITAMIN B-12 [Concomitant]
  5. FOLIC ACID [Concomitant]
  6. CLONIZAPAN [Concomitant]
  7. BIZANIDINE [Concomitant]
  8. POTASSIUM CHLORIDE [Concomitant]
  9. MUCINEX [Concomitant]
  10. BIACTIV [Concomitant]
  11. FLOVENT [Concomitant]
  12. FORADIL [Concomitant]
  13. THERAPIN [Concomitant]
  14. MICARDIA [Concomitant]

REACTIONS (2)
  - CONTUSION [None]
  - MUSCLE SPASMS [None]
